FAERS Safety Report 9524528 (Version 2)
Quarter: 2019Q2

REPORT INFORMATION
  Report Type: Spontaneous
  Country: US (occurrence: US)
  Receive Date: 20130916
  Receipt Date: 20190429
  Transmission Date: 20190711
  Serious: No
  Sender: FDA-Public Use
  Company Number: US-PFIZER INC-2013264388

PATIENT
  Age: 41 Year
  Sex: Female

DRUGS (2)
  1. LYRICA [Suspect]
     Active Substance: PREGABALIN
     Indication: NEURALGIA
     Dosage: UNK
  2. LYRICA [Suspect]
     Active Substance: PREGABALIN
     Indication: NEURITIS
     Dosage: 75 MG, 2X/DAY (1 CAPSULE, 2 TIMES PER DAY, FOR 30 DAYS)
     Dates: start: 20190221

REACTIONS (4)
  - Withdrawal syndrome [Unknown]
  - Vomiting [Unknown]
  - Cold sweat [Unknown]
  - Paraesthesia [Unknown]
